FAERS Safety Report 8546623-X (Version None)
Quarter: 2012Q3

REPORT INFORMATION
  Report Type: 
  Country: None (occurrence: None)
  Receive Date: 20120727
  Receipt Date: 20120223
  Transmission Date: 20120928
  Serious: No
  Sender: FDA-Public Use
  Company Number: US-ASTRAZENECA-2012SE00461

PATIENT
  Age: 54 Year
  Sex: Female

DRUGS (4)
  1. PROZAC [Concomitant]
  2. DOXEPIN [Concomitant]
  3. SEROQUEL [Suspect]
     Route: 048
  4. LITHIUM CARBONATE [Concomitant]

REACTIONS (3)
  - DRUG DOSE OMISSION [None]
  - PSYCHOTIC DISORDER [None]
  - INSOMNIA [None]
